FAERS Safety Report 8009344-8 (Version None)
Quarter: 2011Q4

REPORT INFORMATION
  Report Type: 
  Country: None (occurrence: None)
  Receive Date: 20111227
  Receipt Date: 20111223
  Transmission Date: 20120403
  Serious: Yes (Other)
  Sender: FDA-Public Use
  Company Number: PHEH2011US012428

PATIENT

DRUGS (1)
  1. RECLAST [Suspect]
     Dosage: UNK UKN, UNK
     Route: 042

REACTIONS (5)
  - PHARYNGEAL OEDEMA [None]
  - DYSPNOEA [None]
  - PRURITUS [None]
  - DERMATITIS ALLERGIC [None]
  - SENSATION OF FOREIGN BODY [None]
